FAERS Safety Report 6136043-X (Version None)
Quarter: 2009Q1

REPORT INFORMATION
  Report Type: 
  Country: None (occurrence: None)
  Receive Date: 20090325
  Receipt Date: 20090308
  Transmission Date: 20090719
  Serious: Yes (Other)
  Sender: FDA-Public Use
  Company Number: 2008S1001466

PATIENT
  Age: 55 Year
  Sex: Female
  Weight: 73.4827 kg

DRUGS (9)
  1. PHOSPHOSODA FLAVOR NOT SPECIFIED [Suspect]
     Indication: COLONOSCOPY
     Dosage: PO
     Route: 048
     Dates: start: 20060101, end: 20060112
  2. PHOSPHOSODA FLAVOR NOT SPECIFIED [Suspect]
     Indication: OESOPHAGOGASTRODUODENOSCOPY
     Dosage: PO
     Route: 048
     Dates: start: 20060101, end: 20060112
  3. OMEPRAZOLE [Concomitant]
  4. BENICAR [Concomitant]
  5. HYDROCHLOROTHIAZIDE [Concomitant]
  6. PROMETRIUM [Concomitant]
  7. VIVELLE [Concomitant]
  8. VITAMINS [Concomitant]
  9. CALCIUM [Concomitant]

REACTIONS (1)
  - RENAL FAILURE [None]
